FAERS Safety Report 25051878 (Version 1)
Quarter: 2025Q1

REPORT INFORMATION
  Report Type: Spontaneous
  Country: US (occurrence: None)
  Receive Date: 20250307
  Receipt Date: 20250307
  Transmission Date: 20250409
  Serious: Yes (Other)
  Sender: FDA-CTU
  Company Number: None

PATIENT
  Age: 11 Year
  Sex: Male
  Weight: 33.75 kg

DRUGS (1)
  1. CYCLOPENTOLATE [Suspect]
     Active Substance: CYCLOPENTOLATE
     Indication: Diagnostic procedure
     Route: 047
     Dates: start: 20250306, end: 20250306

REACTIONS (5)
  - Abdominal pain upper [None]
  - Nausea [None]
  - Asthenia [None]
  - Pallor [None]
  - Therapeutic product effect prolonged [None]

NARRATIVE: CASE EVENT DATE: 20250306
